FAERS Safety Report 6980210-X (Version None)
Quarter: 2010Q3

REPORT INFORMATION
  Report Type: 
  Country: None (occurrence: None)
  Receive Date: 20100914
  Receipt Date: 20100908
  Transmission Date: 20110219
  Serious: Yes (Hospitalization)
  Sender: FDA-Public Use
  Company Number: US-RB-014159-10

PATIENT
  Age: 43 Year
  Sex: Male

DRUGS (2)
  1. SUBOXONE [Suspect]
     Indication: DRUG DEPENDENCE
     Route: 060
     Dates: start: 20100701, end: 20100801
  2. SUBOXONE [Suspect]
     Route: 060
     Dates: start: 20100801

REACTIONS (3)
  - DEPRESSION [None]
  - DRUG DEPENDENCE [None]
  - INTERVERTEBRAL DISC DISORDER [None]
